FAERS Safety Report 14669258 (Version 1)
Quarter: 2018Q1

REPORT INFORMATION
  Report Type: Spontaneous
  Country: US (occurrence: US)
  Receive Date: 20180322
  Receipt Date: 20180322
  Transmission Date: 20180509
  Serious: No
  Sender: FDA-Public Use
  Company Number: US-GALDERMA-US18001914

PATIENT
  Sex: Male

DRUGS (3)
  1. CLOBETASOL PROPIONATE SOLUTION [Concomitant]
     Active Substance: CLOBETASOL PROPIONATE
     Route: 061
  2. CLOBETASOL PROPIONATE (CLOBETASOL PROPIONATE) SHAMPOO, 0.05% [Suspect]
     Active Substance: CLOBETASOL PROPIONATE
     Indication: PSORIASIS
     Dosage: 0.05%
     Route: 061
  3. OTEZLA [Concomitant]
     Active Substance: APREMILAST

REACTIONS (4)
  - Skin haemorrhage [Unknown]
  - Pruritus [Unknown]
  - Skin disorder [Unknown]
  - Psoriasis [Unknown]
